FAERS Safety Report 7633433-0 (Version None)
Quarter: 2011Q3

REPORT INFORMATION
  Report Type: 
  Country: None (occurrence: None)
  Receive Date: 20110725
  Receipt Date: 20110718
  Transmission Date: 20111222
  Serious: Yes (Other)
  Sender: FDA-Public Use
  Company Number: AU-PFIZER INC-2011161468

PATIENT
  Age: 37 Year
  Sex: Female

DRUGS (2)
  1. LEVONORGESTREL AND ETHINYL ESTRADIOL [Suspect]
     Indication: ENDOMETRIOSIS
  2. LEVONORGESTREL AND ETHINYL ESTRADIOL [Suspect]
     Indication: OFF LABEL USE
     Dosage: UNK
     Route: 048
     Dates: start: 20110201

REACTIONS (4)
  - HYPOAESTHESIA [None]
  - METRORRHAGIA [None]
  - ASTHMA [None]
  - FLUID RETENTION [None]
